FAERS Safety Report 5124314-5 (Version None)
Quarter: 2006Q3

REPORT INFORMATION
  Report Type: 
  Country: None (occurrence: None)
  Receive Date: 20060816
  Receipt Date: 20060518
  Transmission Date: 20061208
  Serious: No
  Sender: FDA-Public Use
  Company Number: US200605001724

PATIENT
  Age: 66 Year
  Sex: Male

DRUGS (5)
  1. CIALIS [Suspect]
     Indication: ERECTILE DYSFUNCTION
     Dosage: 20 MG
     Dates: start: 20060502
  2. TESTOSTERONE [Concomitant]
  3. NEXIUM/UKN/(ESOMEPRAZOLE) [Concomitant]
  4. HERBAL PREPARATION [Concomitant]
  5. LYSINE (LYSINE) [Concomitant]

REACTIONS (6)
  - ARTHRALGIA [None]
  - BACK PAIN [None]
  - DRUG INEFFECTIVE [None]
  - HEADACHE [None]
  - MUSCLE SPASMS [None]
  - PAIN [None]
